FAERS Safety Report 6668212-4 (Version None)
Quarter: 2010Q2

REPORT INFORMATION
  Report Type: 
  Country: None (occurrence: None)
  Receive Date: 20100405
  Receipt Date: 20100405
  Transmission Date: 20101027
  Serious: Yes (Other)
  Sender: FDA-Public Use
  Company Number: None

PATIENT
  Sex: Female
  Weight: 72.5755 kg

DRUGS (2)
  1. WELLBUTRIN [Suspect]
     Indication: DEPRESSION
     Dosage: 150 MG ONE QD PO
     Route: 048
     Dates: start: 20100119
  2. BRAND NAME WELLBUTRIN XL [Concomitant]

REACTIONS (3)
  - ERYTHEMA [None]
  - PERIPHERAL COLDNESS [None]
  - RASH [None]
